FAERS Safety Report 5611558-9 (Version None)
Quarter: 2008Q1

REPORT INFORMATION
  Report Type: 
  Country: None (occurrence: None)
  Receive Date: 20080201
  Receipt Date: 20080122
  Transmission Date: 20080703
  Serious: No
  Sender: FDA-Public Use
  Company Number: US-BOEHRINGER INGELHEIM GMBH, GERMANY-2008-BP-00965BP

PATIENT
  Age: 56 Year
  Sex: Female

DRUGS (4)
  1. ZANTAC 150 [Suspect]
     Indication: GASTROOESOPHAGEAL REFLUX DISEASE
     Route: 048
     Dates: start: 20071201, end: 20080122
  2. TOPROL-XL [Concomitant]
     Indication: HYPERTENSION
  3. CA++ [Concomitant]
  4. VITAMINS [Concomitant]

REACTIONS (1)
  - DIARRHOEA [None]
